FAERS Safety Report 8874476 (Version 1)
Quarter: 2012Q4

REPORT INFORMATION
  Report Type: 
  Country: NL (occurrence: NL)
  Receive Date: 20121031
  Receipt Date: 20121031
  Transmission Date: 20130627
  Serious: Yes (Death)
  Sender: FDA-Public Use
  Company Number: NL-ACTELION-A-CH2012-73270

PATIENT
  Age: 65 Year
  Sex: Male

DRUGS (1)
  1. TRACLEER [Suspect]
     Indication: DIGITAL ULCER
     Route: 048

REACTIONS (2)
  - Pneumonia [Fatal]
  - Disease complication [None]
